FAERS Safety Report 12410808 (Version 1)
Quarter: 2016Q2

REPORT INFORMATION
  Report Type: Spontaneous
  Country: US (occurrence: US)
  Receive Date: 20160527
  Receipt Date: 20160527
  Transmission Date: 20160815
  Serious: No
  Sender: FDA-Public Use
  Company Number: US-BAYER-2016-102432

PATIENT
  Sex: Female

DRUGS (1)
  1. MIRENA [Suspect]
     Active Substance: LEVONORGESTREL
     Indication: HORMONE REPLACEMENT THERAPY
     Dosage: 20 MCG/24HR, CONT
     Route: 015

REACTIONS (6)
  - Discomfort [None]
  - Unevaluable event [None]
  - Fluid retention [None]
  - Product use issue [None]
  - Weight loss poor [None]
  - Abdominal distension [None]
